FAERS Safety Report 13912143 (Version 1)
Quarter: 2017Q3

REPORT INFORMATION
  Report Type: Spontaneous
  Country: US (occurrence: US)
  Receive Date: 20170828
  Receipt Date: 20170828
  Transmission Date: 20171127
  Serious: No
  Sender: FDA-Public Use
  Company Number: US-ROCHE-1141474

PATIENT
  Sex: Female
  Weight: 90 kg

DRUGS (3)
  1. NUTROPIN [Suspect]
     Active Substance: SOMATROPIN
     Indication: GROWTH HORMONE DEFICIENCY
     Dosage: 0.1 ML PER INJECTION
     Route: 058
     Dates: start: 199807
  2. NUTROPIN [Suspect]
     Active Substance: SOMATROPIN
     Route: 058
     Dates: start: 199809
  3. NUTROPIN [Suspect]
     Active Substance: SOMATROPIN
     Dosage: FIRST DOSE ON AN UNSPECIFIED DATE
     Route: 058
     Dates: end: 199712

REACTIONS (3)
  - Asthenia [Recovered/Resolved]
  - Abnormal weight gain [Recovered/Resolved]
  - Somnolence [Recovered/Resolved]
